FAERS Safety Report 6472952-X (Version None)
Quarter: 2009Q4

REPORT INFORMATION
  Report Type: 
  Country: None (occurrence: None)
  Receive Date: 20091203
  Receipt Date: 20091119
  Transmission Date: 20100525
  Serious: Yes (Hospitalization)
  Sender: FDA-Public Use
  Company Number: DE-MYLANLABS-2009S1017534

PATIENT
  Age: 79 Year
  Sex: Female
  Weight: 43 kg

DRUGS (10)
  1. IBUPROFEN [Suspect]
     Indication: PAIN
     Route: 048
     Dates: start: 20090501
  2. HYDROMORPHONE HCL [Interacting]
     Indication: PAIN
     Route: 048
     Dates: start: 20090501, end: 20090824
  3. PALLADON /00080901/ [Interacting]
     Indication: PAIN
     Route: 048
     Dates: start: 20090501, end: 20090826
  4. ISOPTIN RR PLUS [Interacting]
     Indication: ATRIAL FIBRILLATION
     Dosage: 1 DF= 240MG VERAPAMIL + 12.5MG HCT
     Route: 048
     Dates: start: 20070101
  5. LOSARTAN POTASSIUM AND HYDROCHLOROTHIAZIDE [Interacting]
     Indication: HYPERTENSION
     Dosage: 1 DF= 100MG LOSARTAN + 12.5MG HCT
     Route: 048
  6. PENTAERYTHRITOL TETRANITRATE [Concomitant]
     Indication: CORONARY ARTERY DISEASE
     Route: 048
  7. DOMPERIDONE [Concomitant]
     Indication: NAUSEA
     Route: 048
     Dates: start: 20090501
  8. PANTOPRAZOLE [Concomitant]
     Indication: PROPHYLAXIS AGAINST GASTROINTESTINAL ULCER
     Route: 048
     Dates: start: 20080101
  9. FALITHROM [Concomitant]
     Indication: ATRIAL FIBRILLATION
     Dosage: APPLIKATION: 6X1.5MG UND 1X3MG = 9MG PRO WOCHE
     Route: 048
     Dates: end: 20090826
  10. CELEBREX [Concomitant]
     Indication: PAIN
     Route: 048
     Dates: start: 20080101, end: 20090826

REACTIONS (2)
  - DRUG INTERACTION [None]
  - FAECALOMA [None]
